FAERS Safety Report 8242959-0 (Version None)
Quarter: 2012Q1

REPORT INFORMATION
  Report Type: 
  Country: None (occurrence: None)
  Receive Date: 20120329
  Receipt Date: 20120319
  Transmission Date: 20120608
  Serious: Yes (Hospitalization, Other)
  Sender: FDA-Public Use
  Company Number: US-JNJFOC-20110704457

PATIENT
  Sex: Female

DRUGS (10)
  1. LEVAQUIN [Suspect]
     Route: 048
     Dates: start: 20080626
  2. FLAGYL [Concomitant]
     Indication: ASTHMA
     Route: 065
  3. LEVAQUIN [Suspect]
     Route: 048
     Dates: start: 20080626
  4. LEVAQUIN [Suspect]
     Indication: ASTHMA
     Route: 048
     Dates: start: 20080706
  5. LEVAQUIN [Suspect]
     Indication: CHRONIC OBSTRUCTIVE PULMONARY DISEASE
     Route: 048
     Dates: start: 20080706
  6. LEVAQUIN [Suspect]
     Indication: INFECTION
     Route: 048
     Dates: start: 20080706
  7. SOLU-MEDROL [Suspect]
     Indication: ASTHMA
     Route: 042
  8. LEVAQUIN [Suspect]
     Route: 048
     Dates: start: 20080626
  9. STEROIDS NOS [Suspect]
     Indication: PRODUCT USED FOR UNKNOWN INDICATION
     Route: 065
  10. PREDNISONE TAB [Suspect]
     Indication: ASTHMA
     Route: 048

REACTIONS (3)
  - TENDON RUPTURE [None]
  - BIPOLAR DISORDER [None]
  - TENOSYNOVITIS [None]
